FAERS Safety Report 24984393 (Version 3)
Quarter: 2025Q3

REPORT INFORMATION
  Report Type: Report from Study
  Country: EG (occurrence: EG)
  Receive Date: 20250219
  Receipt Date: 20250916
  Transmission Date: 20251020
  Serious: Yes (Disabling)
  Sender: ROCHE
  Company Number: EG-ROCHE-2844610

PATIENT
  Age: 31 Year
  Sex: Male
  Weight: 72 kg

DRUGS (1)
  1. OCREVUS [Suspect]
     Active Substance: OCRELIZUMAB
     Indication: Multiple sclerosis
     Dosage: SUBSEQUENT DOSE OF OCRELIZUMAB: 03/MAR/2025
     Route: 042
     Dates: start: 20210220

REACTIONS (14)
  - Hypoaesthesia [Not Recovered/Not Resolved]
  - Weight increased [Not Recovered/Not Resolved]
  - Movement disorder [Not Recovered/Not Resolved]
  - Pain [Not Recovered/Not Resolved]
  - Product prescribing issue [Unknown]
  - Product dose omission issue [Unknown]
  - Hypoaesthesia [Recovered/Resolved]
  - Limb discomfort [Not Recovered/Not Resolved]
  - Strabismus [Recovered/Resolved]
  - Red blood cell count increased [Not Recovered/Not Resolved]
  - General physical health deterioration [Not Recovered/Not Resolved]
  - Withdrawal syndrome [Not Recovered/Not Resolved]
  - Off label use [Unknown]
  - Nasopharyngitis [Not Recovered/Not Resolved]

NARRATIVE: CASE EVENT DATE: 20230306
